FAERS Safety Report 21925960 (Version 1)
Quarter: 2023Q1

REPORT INFORMATION
  Report Type: Spontaneous
  Country: US (occurrence: None)
  Receive Date: 20230127
  Receipt Date: 20230127
  Transmission Date: 20230418
  Serious: No
  Sender: FDA-Public Use
  Company Number: None

PATIENT

DRUGS (2)
  1. LEVOFLOXACIN [Suspect]
     Active Substance: LEVOFLOXACIN
     Indication: Localised infection
     Dosage: 10 TABLETS ONCE A DAY TAKEN BY MOUTH?
     Route: 048
     Dates: start: 20220831, end: 20220910
  2. ASPIRIN [Concomitant]
     Active Substance: ASPIRIN

REACTIONS (1)
  - Plantar fasciitis [None]

NARRATIVE: CASE EVENT DATE: 20220901
